FAERS Safety Report 15807432 (Version 1)
Quarter: 2019Q1

REPORT INFORMATION
  Report Type: Spontaneous
  Country: US (occurrence: US)
  Receive Date: 20190110
  Receipt Date: 20190110
  Transmission Date: 20190417
  Serious: No
  Sender: FDA-Public Use
  Company Number: US-SUNOVION-2019SUN000090

PATIENT
  Sex: Female

DRUGS (2)
  1. ALBUTEROL. [Suspect]
     Active Substance: ALBUTEROL
     Dosage: UNKNOWN
     Route: 065
  2. LONHALA MAGNAIR [Suspect]
     Active Substance: GLYCOPYRROLATE
     Dosage: 25MCG/1ML
     Route: 055

REACTIONS (4)
  - Tremor [Unknown]
  - Chest pain [Unknown]
  - Productive cough [Unknown]
  - Cough [Unknown]
